FAERS Safety Report 4295220-3 (Version None)
Quarter: 2004Q1

REPORT INFORMATION
  Report Type: 
  Country: None (occurrence: None)
  Receive Date: 20040216
  Receipt Date: 20030414
  Transmission Date: 20041129
  Serious: No
  Sender: FDA-Public Use
  Company Number: US-GLAXOSMITHKLINE-A0404792A

PATIENT
  Age: 43 Year
  Sex: Female

DRUGS (3)
  1. LAMICTAL [Suspect]
     Dosage: 50MG PER DAY
     Route: 048
     Dates: start: 20030401
  2. ADDERALL 10 [Concomitant]
  3. ZOLOFT [Concomitant]

REACTIONS (4)
  - HEADACHE [None]
  - LOCAL SWELLING [None]
  - PRURITUS [None]
  - RASH [None]
